FAERS Safety Report 12735087 (Version 1)
Quarter: 2016Q3

REPORT INFORMATION
  Report Type: Report from Study
  Country: ES (occurrence: ES)
  Receive Date: 20160913
  Receipt Date: 20160913
  Transmission Date: 20161109
  Serious: Yes (Other)
  Sender: FDA-Public Use
  Company Number: ES-BAXTER-2016BAX046091

PATIENT
  Age: 64 Year

DRUGS (15)
  1. GENOXAL [Suspect]
     Active Substance: CYCLOPHOSPHAMIDE
     Route: 065
     Dates: start: 20110606, end: 20110608
  2. FLUDARABINE [Suspect]
     Active Substance: FLUDARABINE PHOSPHATE
     Dosage: REDUCED DOSE
     Route: 065
     Dates: start: 20110803, end: 20110805
  3. GENOXAL [Suspect]
     Active Substance: CYCLOPHOSPHAMIDE
     Route: 065
     Dates: start: 20110510, end: 20110512
  4. GENOXAL [Suspect]
     Active Substance: CYCLOPHOSPHAMIDE
     Route: 065
     Dates: start: 20110704, end: 20110706
  5. GENOXAL [Suspect]
     Active Substance: CYCLOPHOSPHAMIDE
     Dosage: REDUCED DOSE
     Route: 065
     Dates: start: 20110803, end: 20110805
  6. RITUXIMAB [Suspect]
     Active Substance: RITUXIMAB
     Dosage: COMPLETE DOSE
     Route: 065
     Dates: start: 20110606, end: 20110608
  7. RITUXIMAB [Suspect]
     Active Substance: RITUXIMAB
     Dosage: COMPLETE DOSE
     Route: 065
     Dates: start: 20110803, end: 20110805
  8. FLUDARABINE [Suspect]
     Active Substance: FLUDARABINE PHOSPHATE
     Dosage: COMPLETE DOSE
     Route: 065
     Dates: start: 20110606, end: 20110608
  9. FLUDARABINE [Suspect]
     Active Substance: FLUDARABINE PHOSPHATE
     Dosage: COMPLETE DOSE
     Route: 065
     Dates: start: 20110704, end: 20110706
  10. RITUXIMAB [Suspect]
     Active Substance: RITUXIMAB
     Dosage: COMPLETE DOSE
     Route: 065
     Dates: start: 20110510, end: 20110512
  11. FLUDARABINE [Suspect]
     Active Substance: FLUDARABINE PHOSPHATE
     Indication: CHRONIC LYMPHOCYTIC LEUKAEMIA
     Dosage: COMPLETE DOSE
     Route: 065
     Dates: start: 20110412, end: 20110415
  12. RITUXIMAB [Suspect]
     Active Substance: RITUXIMAB
     Dosage: COMPLETE DOSE
     Route: 065
     Dates: start: 20110704, end: 20110706
  13. FLUDARABINE [Suspect]
     Active Substance: FLUDARABINE PHOSPHATE
     Dosage: COMPLETE DOSE
     Route: 065
     Dates: start: 20110510, end: 20110512
  14. RITUXIMAB [Suspect]
     Active Substance: RITUXIMAB
     Indication: CHRONIC LYMPHOCYTIC LEUKAEMIA
     Dosage: COMPLETE DOSE
     Route: 065
     Dates: start: 20110412, end: 20110415
  15. GENOXAL [Suspect]
     Active Substance: CYCLOPHOSPHAMIDE
     Indication: CHRONIC LYMPHOCYTIC LEUKAEMIA
     Route: 065
     Dates: start: 20110412, end: 20110415

REACTIONS (1)
  - Haematotoxicity [Recovered/Resolved]

NARRATIVE: CASE EVENT DATE: 20110704
